FAERS Safety Report 7711700-X (Version None)
Quarter: 2011Q3

REPORT INFORMATION
  Report Type: 
  Country: None (occurrence: None)
  Receive Date: 20110826
  Receipt Date: 20110824
  Transmission Date: 20111222
  Serious: Yes (Death, Life-Threatening, Hospitalization)
  Sender: FDA-Public Use
  Company Number: JP-B.I. PHARMACEUTICALS,INC./RIDGEFIELD-2011-BP-19499NB

PATIENT
  Age: 87 Year
  Sex: Female
  Weight: 53 kg

DRUGS (9)
  1. PRADAXA [Suspect]
     Indication: ATRIAL FIBRILLATION
     Dosage: 220 MG
     Route: 048
     Dates: start: 20110714, end: 20110724
  2. OMEPRAZOLE [Concomitant]
     Indication: GASTRIC ULCER
     Dosage: 20 MG
     Route: 048
     Dates: start: 20110625, end: 20110720
  3. LASIX [Concomitant]
     Indication: POLYURIA
     Dosage: 15 MG
     Route: 048
     Dates: start: 20110624, end: 20110720
  4. ALDACTONE [Concomitant]
     Route: 065
  5. OPAPROSMON [Concomitant]
     Indication: DEEP VEIN THROMBOSIS
     Dosage: 15 MCG
     Route: 048
     Dates: start: 20110624, end: 20110720
  6. URSO 250 [Concomitant]
     Indication: LIVER DISORDER
     Dosage: 300 MG
     Route: 048
     Dates: start: 20110628, end: 20110720
  7. DIGOXIN [Concomitant]
     Indication: ATRIAL FIBRILLATION
     Dosage: 0.125 MG
     Route: 048
     Dates: start: 20110630, end: 20110720
  8. TPN ELECTROLYTES IN PLASTIC CONTAINER [Concomitant]
     Indication: NUTRITIONAL CONDITION ABNORMAL
     Dosage: 1500 ML
     Route: 042
     Dates: start: 20110622, end: 20110725
  9. NICORANTA [Concomitant]
     Indication: ANGINA PECTORIS
     Dosage: 10 MG
     Route: 048
     Dates: start: 20110624, end: 20110724

REACTIONS (3)
  - INTERNATIONAL NORMALISED RATIO INCREASED [None]
  - MELAENA [None]
  - EXSANGUINATION [None]
